FAERS Safety Report 5838149-9 (Version None)
Quarter: 2008Q3

REPORT INFORMATION
  Report Type: 
  Country: None (occurrence: None)
  Receive Date: 20080808
  Receipt Date: 20080729
  Transmission Date: 20090109
  Serious: Yes (Hospitalization)
  Sender: FDA-Public Use
  Company Number: DE-JNJFOC-20060801437

PATIENT
  Age: 54 Year
  Sex: Female

DRUGS (5)
  1. REMICADE [Suspect]
     Route: 042
  2. REMICADE [Suspect]
     Indication: RHEUMATOID ARTHRITIS
     Route: 042
  3. ARAVA [Suspect]
     Route: 065
  4. ARAVA [Suspect]
     Indication: POLYARTHRITIS
     Route: 065
  5. STEROIDS [Suspect]
     Indication: DRUG USE FOR UNKNOWN INDICATION
     Route: 065

REACTIONS (4)
  - HOSPITALISATION [None]
  - IMPAIRED HEALING [None]
  - OSTEOMYELITIS [None]
  - PSEUDARTHROSIS [None]
